FAERS Safety Report 14247204 (Version 2)
Quarter: 2017Q4

REPORT INFORMATION
  Report Type: Spontaneous
  Country: FR (occurrence: FR)
  Receive Date: 20171204
  Receipt Date: 20171212
  Transmission Date: 20180321
  Serious: Yes (Hospitalization)
  Sender: FDA-Public Use
  Company Number: FR-NOVOPROD-572463

PATIENT
  Age: 10 Year
  Sex: Male
  Weight: 38 kg

DRUGS (3)
  1. MICROPAKINE [Suspect]
     Active Substance: VALPROIC ACID
     Indication: MOTOR DYSFUNCTION
  2. NORDITROPIN [Suspect]
     Active Substance: SOMATROPIN
     Indication: FOETAL GROWTH RESTRICTION
     Dosage: 1.6 MG, QD
     Route: 030
     Dates: start: 2010
  3. MICROPAKINE [Suspect]
     Active Substance: VALPROIC ACID
     Indication: EPILEPSY
     Dosage: 450 MG, TID
     Route: 048
     Dates: start: 201702

REACTIONS (2)
  - Anaemia [Recovered/Resolved]
  - Off label use [Unknown]

NARRATIVE: CASE EVENT DATE: 2010
